FAERS Safety Report 13023948 (Version 1)
Quarter: 2016Q4

REPORT INFORMATION
  Report Type: Spontaneous
  Country: US (occurrence: US)
  Receive Date: 20161213
  Receipt Date: 20161213
  Transmission Date: 20170207
  Serious: Yes (Death)
  Sender: FDA-Public Use
  Company Number: US-LPDUSPRD-20161101

PATIENT
  Age: 28 Year
  Sex: Female

DRUGS (3)
  1. LEUCOVORIN CALCIUM INJECTION (0517-8605-25) [Suspect]
     Active Substance: LEUCOVORIN CALCIUM
     Dosage: CYCLE 1; 2 WEEKS LATER CYCLE 2
     Route: 065
  2. FLUOROURACIL. [Suspect]
     Active Substance: FLUOROURACIL
     Dosage: CYCLE 1; 2 WEEKS LATER CYCLE 2
     Route: 065
  3. IRINOTECAN [Suspect]
     Active Substance: IRINOTECAN
     Dosage: CYCLE 1; 2 WEEKS LATER CYCLE 2
     Route: 065

REACTIONS (5)
  - Septic shock [Unknown]
  - Posterior reversible encephalopathy syndrome [Unknown]
  - Acute respiratory failure [Unknown]
  - Death [Fatal]
  - Cardiogenic shock [Unknown]
